FAERS Safety Report 7304445-1 (Version None)
Quarter: 2011Q1

REPORT INFORMATION
  Report Type: 
  Country: None (occurrence: None)
  Receive Date: 20110221
  Receipt Date: 20110211
  Transmission Date: 20110831
  Serious: Yes (Hospitalization, Other)
  Sender: FDA-Public Use
  Company Number: US-ASTRAZENECA-2010SE20642

PATIENT
  Age: 81 Year
  Sex: Female

DRUGS (1)
  1. NEXIUM [Suspect]
     Route: 048
     Dates: start: 20050101

REACTIONS (6)
  - VISUAL ACUITY REDUCED [None]
  - BARRETT'S OESOPHAGUS [None]
  - MACULAR DEGENERATION [None]
  - CATARACT [None]
  - DEPRESSION [None]
  - ANXIETY [None]
